FAERS Safety Report 18714192 (Version 1)
Quarter: 2021Q1

REPORT INFORMATION
  Report Type: Spontaneous
  Country: US (occurrence: US)
  Receive Date: 20210107
  Receipt Date: 20210107
  Transmission Date: 20210419
  Serious: No
  Sender: FDA-Public Use
  Company Number: US-ICU MEDICAL, INC.-ICU2020US00064

PATIENT

DRUGS (1)
  1. 0.9% SODIUM CHLORIDE INJECTION USP (500 ML) [Suspect]
     Active Substance: SODIUM CHLORIDE
     Indication: APHERESIS
     Dosage: 200 MILLILITER
     Route: 042

REACTIONS (2)
  - Expired product administered [Unknown]
  - No adverse event [Unknown]
